FAERS Safety Report 11557419 (Version 1)
Quarter: 2015Q3

REPORT INFORMATION
  Report Type: Spontaneous
  Country: US (occurrence: US)
  Receive Date: 20150916
  Receipt Date: 20150916
  Transmission Date: 20151125
  Serious: No
  Sender: FDA-Public Use
  Company Number: US-ELI_LILLY_AND_COMPANY-US200807003138

PATIENT
  Sex: Female
  Weight: 77.1 kg

DRUGS (7)
  1. RANITIDINE [Concomitant]
     Active Substance: RANITIDINE\RANITIDINE HYDROCHLORIDE
  2. ALBUTEROL SULFATE W/IPRATROPIUM BROMIDE [Concomitant]
     Active Substance: ALBUTEROL SULFATE\IPRATROPIUM BROMIDE
  3. ZYRTEC [Concomitant]
     Active Substance: CETIRIZINE HYDROCHLORIDE
  4. ZOCOR [Concomitant]
     Active Substance: SIMVASTATIN
  5. FORTEO [Suspect]
     Active Substance: TERIPARATIDE
     Indication: OSTEOPOROSIS
     Dosage: 20 UG, DAILY (1/D)
     Dates: start: 200709
  6. ASPIRIN. [Concomitant]
     Active Substance: ASPIRIN
  7. ENABLEX                            /01760402/ [Concomitant]

REACTIONS (4)
  - Injection site bruising [Unknown]
  - Injection site erythema [Unknown]
  - Sleep apnoea syndrome [Recovering/Resolving]
  - Ill-defined disorder [Unknown]
